FAERS Safety Report 17412389 (Version 1)
Quarter: 2020Q1

REPORT INFORMATION
  Report Type: Spontaneous
  Country: US (occurrence: US)
  Receive Date: 20200213
  Receipt Date: 20200213
  Transmission Date: 20200409
  Serious: No
  Sender: FDA-Public Use
  Company Number: US-009507513-2002USA004270

PATIENT
  Sex: Female

DRUGS (6)
  1. PREDNISONE. [Concomitant]
     Active Substance: PREDNISONE
     Dosage: UNK
  2. PRASTERONE [Concomitant]
     Active Substance: PRASTERONE
     Dosage: UNK
  3. METFORMIN [Concomitant]
     Active Substance: METFORMIN HYDROCHLORIDE
     Dosage: UNK
  4. PREGNYL [Concomitant]
     Active Substance: CHORIOGONADOTROPIN ALFA
     Dosage: UNK
  5. PREGNYL [Suspect]
     Active Substance: CHORIOGONADOTROPIN ALFA
     Indication: INFERTILITY FEMALE
     Dosage: 10,000 UNITS MDV, 1 MILLILITER, AS DIRECTED
     Route: 030
     Dates: start: 20190430
  6. CETROTIDE [Concomitant]
     Active Substance: CETRORELIX ACETATE
     Dosage: UNK

REACTIONS (2)
  - Malaise [Unknown]
  - Nausea [Recovered/Resolved]
